FAERS Safety Report 10530583 (Version 1)
Quarter: 2014Q4

REPORT INFORMATION
  Report Type: Report from Study
  Country: US (occurrence: US)
  Receive Date: 20141021
  Receipt Date: 20141021
  Transmission Date: 20150528
  Serious: Yes (Other)
  Sender: FDA-Public Use
  Company Number: US-SA-2014SA142658

PATIENT
  Age: 11 Year
  Sex: Male

DRUGS (1)
  1. RASBURICASE [Suspect]
     Active Substance: RASBURICASE
     Indication: ACUTE LYMPHOCYTIC LEUKAEMIA
     Dosage: 4 DOSES
     Route: 042

REACTIONS (2)
  - Disseminated intravascular coagulation [Recovered/Resolved]
  - Haemolysis [Unknown]
